FAERS Safety Report 14022382 (Version 2)
Quarter: 2018Q2

REPORT INFORMATION
  Report Type: Spontaneous
  Country: RU (occurrence: RU)
  Receive Date: 20170928
  Receipt Date: 20180410
  Transmission Date: 20180711
  Serious: Yes (Other)
  Sender: FDA-Public Use
  Company Number: RU-ASTRAZENECA-2017SE97874

PATIENT
  Age: 59 Year
  Sex: Male
  Weight: 78 kg

DRUGS (5)
  1. BRILINTA [Suspect]
     Active Substance: TICAGRELOR
     Indication: MYOCARDIAL INFARCTION
     Route: 048
     Dates: start: 20170602
  2. BRILINTA [Suspect]
     Active Substance: TICAGRELOR
     Indication: STENT PLACEMENT
     Route: 048
     Dates: start: 20170602
  3. TORVACARD [Concomitant]
     Active Substance: ATORVASTATIN CALCIUM
     Dates: end: 20170918
  4. BETALOC ZOC [Concomitant]
     Dates: end: 20170918
  5. ISOKET [Concomitant]
     Active Substance: ISOSORBIDE DINITRATE
     Dates: end: 20170918

REACTIONS (3)
  - Type 2 diabetes mellitus [Not Recovered/Not Resolved]
  - Vascular stent thrombosis [Recovered/Resolved]
  - Headache [Not Recovered/Not Resolved]
